FAERS Safety Report 7693332-5 (Version None)
Quarter: 2011Q3

REPORT INFORMATION
  Report Type: 
  Country: None (occurrence: None)
  Receive Date: 20110819
  Receipt Date: 20110809
  Transmission Date: 20111222
  Serious: Yes (Life-Threatening, Hospitalization, Other)
  Sender: FDA-Public Use
  Company Number: CN-JNJFOC-20110805076

PATIENT
  Age: 48 Year
  Sex: Female

DRUGS (15)
  1. UNKNOWN MEDICATION [Concomitant]
     Indication: PROPHYLAXIS
     Route: 065
  2. UNKNOWN MEDICATION [Concomitant]
     Route: 065
  3. NIZORAL [Suspect]
     Dosage: APPROXIMATELY 10 DAYS
     Route: 048
     Dates: start: 20110601
  4. UNKNOWN MEDICATION [Concomitant]
     Indication: DETOXIFICATION
     Route: 065
  5. METHYLPREDNISOLONE [Concomitant]
     Indication: DETOXIFICATION
     Route: 065
  6. ALPROSTADIL [Concomitant]
     Indication: DETOXIFICATION
     Route: 065
  7. GLUTATHIONE [Concomitant]
     Indication: DETOXIFICATION
     Route: 065
  8. METHYLPREDNISOLONE [Concomitant]
     Indication: PROPHYLAXIS
     Route: 065
  9. UNKNOWN MEDICATION [Concomitant]
     Route: 065
  10. UNKNOWN MEDICATION [Concomitant]
     Indication: GASTRIC DISORDER
     Route: 065
  11. GLUTATHIONE [Concomitant]
     Indication: PROPHYLAXIS
     Route: 065
  12. GLYCYRRHIZIC ACID, AMMONIUM SALT [Concomitant]
     Indication: PROPHYLAXIS
     Route: 065
  13. GLYCYRRHIZIC ACID, AMMONIUM SALT [Concomitant]
     Indication: DETOXIFICATION
     Route: 065
  14. ALPROSTADIL [Concomitant]
     Indication: PROPHYLAXIS
     Route: 065
  15. NIZORAL [Suspect]
     Indication: ONYCHOMYCOSIS
     Dosage: POSSIBLY FOR 10 DAYS AND TAKEN ABOUT 10 TABLETS
     Route: 048
     Dates: start: 20110301

REACTIONS (6)
  - ABDOMINAL PAIN UPPER [None]
  - DISSEMINATED INTRAVASCULAR COAGULATION [None]
  - DIZZINESS [None]
  - SUBACUTE HEPATIC FAILURE [None]
  - HEPATITIS [None]
  - HEPATIC ENCEPHALOPATHY [None]
